FAERS Safety Report 20876414 (Version 3)
Quarter: 2022Q4

REPORT INFORMATION
  Report Type: Spontaneous
  Country: SK (occurrence: SK)
  Receive Date: 20220526
  Receipt Date: 20221020
  Transmission Date: 20230112
  Serious: Yes (Hospitalization, Other)
  Sender: FDA-Public Use
  Company Number: SK-ASTELLAS-2022US016958

PATIENT
  Age: 57 Year
  Sex: Female

DRUGS (15)
  1. POSACONAZOLE [Interacting]
     Active Substance: POSACONAZOLE
     Indication: Antifungal prophylaxis
     Dosage: 3 DF, ONCE DAILY (100 MG X 3 TABLETS)
     Route: 065
     Dates: start: 20220909
  2. POSACONAZOLE [Interacting]
     Active Substance: POSACONAZOLE
     Dosage: 100 MG, ONCE DAILY (1 TABLET/ DAILY) [AFTER 8-DAYS OF TAKING GILTERITINIB]
     Route: 065
     Dates: start: 20220422
  3. POSACONAZOLE [Interacting]
     Active Substance: POSACONAZOLE
     Dosage: 3 DF, ONCE DAILY (100 MG X 3 TABLETS) (UNTIL GILTERITINIB THERAPY STARTED)
     Route: 065
  4. XOSPATA [Interacting]
     Active Substance: GILTERITINIB
     Indication: FLT3 gene mutation
     Dosage: 1 DF (40 MG TABLET), ONCE DAILY (TEMPORARILY FOR A SHORT TIME 2TBL/DAY)
     Route: 065
     Dates: start: 20220414, end: 20220906
  5. XOSPATA [Interacting]
     Active Substance: GILTERITINIB
     Indication: Acute myeloid leukaemia recurrent
  6. VALTREX [Concomitant]
     Active Substance: VALACYCLOVIR HYDROCHLORIDE
     Indication: Product used for unknown indication
     Dosage: 500 MILLIGRAM (TWICE DAILY (1-0-1 TABLET)
     Route: 065
  7. EXJADE [Concomitant]
     Active Substance: DEFERASIROX
     Indication: Product used for unknown indication
     Dosage: 360 MG, UNKNOWN FREQ.
     Route: 065
  8. BISEPTOL [Concomitant]
     Active Substance: SULFAMETHOXAZOLE\TRIMETHOPRIM
     Indication: Product used for unknown indication
     Dosage: 480 MG, [2 X1 TABLET (MONDAY/THURSDAY)]
  9. URSODIOL [Concomitant]
     Active Substance: URSODIOL
     Indication: Product used for unknown indication
     Dosage: 2 DF, TWICE DAILY (0-0-2 TABLETS)
  10. FOLIC ACID [Concomitant]
     Active Substance: FOLIC ACID
     Indication: Product used for unknown indication
     Dosage: 10 MG, ONCE DAILY (0-1-0 TABLET)
  11. MAGNEROT [MAGNESIUM OROTATE] [Concomitant]
     Indication: Product used for unknown indication
     Dosage: 2 DF, TWICE DAILY (0-0-2 TABLETS)
  12. ARANESP [Concomitant]
     Active Substance: DARBEPOETIN ALFA
     Indication: Product used for unknown indication
     Dosage: 500 IU, UNKNOWN FREQ.
     Route: 058
  13. FILGRASTIM [Concomitant]
     Active Substance: FILGRASTIM
     Indication: Product used for unknown indication
     Dosage: 48 IU, UNKNOWN FREQ.
     Route: 058
     Dates: start: 20220417
  14. FILGRASTIM [Concomitant]
     Active Substance: FILGRASTIM
     Dosage: 48 IU, UNKNOWN FREQ.
     Route: 058
     Dates: start: 20220415
  15. POTASSIUM CHLORIDE [Concomitant]
     Active Substance: POTASSIUM CHLORIDE
     Indication: Product used for unknown indication
     Dosage: UNK UNK, TWICE DAILY (1-0-1 CAPSULES)
     Route: 065

REACTIONS (5)
  - Underdose [Recovering/Resolving]
  - Off label use [Recovering/Resolving]
  - Drug interaction [Recovering/Resolving]
  - Acute febrile neutrophilic dermatosis [Recovered/Resolved]
  - Acute febrile neutrophilic dermatosis [Recovering/Resolving]

NARRATIVE: CASE EVENT DATE: 20220414
